FAERS Safety Report 5297915-1 (Version None)
Quarter: 2007Q2

REPORT INFORMATION
  Report Type: 
  Country: None (occurrence: None)
  Receive Date: 20070416
  Receipt Date: 20070411
  Transmission Date: 20071010
  Serious: Yes (Hospitalization)
  Sender: FDA-Public Use
  Company Number: CA-GLAXOSMITHKLINE-A0646211A

PATIENT
  Sex: Female
  Weight: 77.3 kg

DRUGS (3)
  1. AVANDIA [Suspect]
     Indication: DRUG USE FOR UNKNOWN INDICATION
     Dosage: 8MG PER DAY
     Route: 048
     Dates: start: 20020101
  2. ATACAND [Concomitant]
     Dosage: 16MG PER DAY
     Route: 048
  3. INDAPAMIDE [Concomitant]
     Dosage: 25MG PER DAY
     Route: 048

REACTIONS (1)
  - FEMUR FRACTURE [None]
